FAERS Safety Report 16001701 (Version 16)
Quarter: 2024Q2

REPORT INFORMATION
  Report Type: Spontaneous
  Country: US (occurrence: US)
  Receive Date: 20190225
  Receipt Date: 20240621
  Transmission Date: 20240716
  Serious: Yes (Other)
  Sender: FDA-Public Use
  Company Number: US-PFIZER INC-2019080617

PATIENT
  Age: 79 Year
  Sex: Female

DRUGS (1)
  1. XELJANZ [Suspect]
     Active Substance: TOFACITINIB CITRATE
     Indication: Rheumatoid arthritis
     Dosage: 5 MG, 2X/DAY

REACTIONS (18)
  - Spinal fracture [Unknown]
  - Spinal compression fracture [Unknown]
  - Spinal pain [Unknown]
  - Back injury [Unknown]
  - Fall [Unknown]
  - Malaise [Unknown]
  - Headache [Unknown]
  - Illness [Unknown]
  - Nasopharyngitis [Not Recovered/Not Resolved]
  - Oropharyngeal pain [Unknown]
  - Memory impairment [Unknown]
  - Pain [Unknown]
  - Gait disturbance [Unknown]
  - Visual acuity reduced [Unknown]
  - Anxiety [Unknown]
  - Mental disorder [Unknown]
  - Crying [Unknown]
  - Back disorder [Unknown]

NARRATIVE: CASE EVENT DATE: 20230101
